FAERS Safety Report 10674691 (Version 1)
Quarter: 2014Q4

REPORT INFORMATION
  Report Type: Report from Study
  Country: US (occurrence: US)
  Receive Date: 20141224
  Receipt Date: 20141224
  Transmission Date: 20150529
  Serious: Yes (Hospitalization)
  Sender: FDA-Public Use
  Company Number: US-ASTELLAS-2014US021100

PATIENT
  Age: 76 Year
  Sex: Male

DRUGS (2)
  1. ERLOTINIB [Suspect]
     Active Substance: ERLOTINIB
     Indication: NON-SMALL CELL LUNG CANCER
     Route: 048
  2. RO 4858696 (IGF-IR ANTAGONIST) [Suspect]
     Active Substance: TEPROTUMUMAB
     Indication: NON-SMALL CELL LUNG CANCER
     Route: 042
     Dates: start: 20090401, end: 20090513

REACTIONS (1)
  - Hypovolaemia [Recovered/Resolved with Sequelae]

NARRATIVE: CASE EVENT DATE: 20090505
